APPROVED DRUG PRODUCT: SECREFLO
Active Ingredient: SECRETIN SYNTHETIC PORCINE
Strength: 16MCG/VIAL
Dosage Form/Route: FOR SOLUTION;INTRAVENOUS
Application: N021136 | Product #001
Applicant: CHIRHOCLIN INC
Approved: Apr 4, 2002 | RLD: No | RS: No | Type: DISCN